FAERS Safety Report 13007637 (Version 3)
Quarter: 2017Q1

REPORT INFORMATION
  Report Type: Spontaneous
  Country: US (occurrence: US)
  Receive Date: 20161207
  Receipt Date: 20170203
  Transmission Date: 20170428
  Serious: Yes (Death)
  Sender: FDA-Public Use
  Company Number: US-BAUSCH-BL-2016-030828

PATIENT
  Age: 74 Year
  Sex: Female

DRUGS (3)
  1. XIFAXAN [Suspect]
     Active Substance: RIFAXIMIN
     Indication: HEPATIC CIRRHOSIS
     Route: 048
     Dates: start: 20151130
  2. LACTULOSE. [Concomitant]
     Active Substance: LACTULOSE
     Indication: AMMONIA INCREASED
  3. XIFAXAN [Suspect]
     Active Substance: RIFAXIMIN
     Indication: AMMONIA INCREASED

REACTIONS (9)
  - Acute kidney injury [Fatal]
  - Thrombocytopenia [Fatal]
  - Cellulitis [Fatal]
  - Hepatic cirrhosis [Fatal]
  - Pneumonia [Fatal]
  - Peripheral swelling [Unknown]
  - Non-alcoholic steatohepatitis [Fatal]
  - Hepatorenal syndrome [Fatal]
  - Hepatic encephalopathy [Fatal]

NARRATIVE: CASE EVENT DATE: 20160714
